FAERS Safety Report 9195966 (Version 1)
Quarter: 2013Q1

REPORT INFORMATION
  Report Type: Spontaneous
  Country: US (occurrence: None)
  Receive Date: 20120705
  Receipt Date: 20120705
  Transmission Date: 20140127
  Serious: Yes (Hospitalization, Other)
  Sender: FDA-Public Use
  Company Number: US-CYPR-2011-000131

PATIENT
  Age: 94 None
  Sex: 0
  Weight: 94 kg

DRUGS (3)
  1. CLOPIDOGREL\PLACEBO [Suspect]
     Indication: ANTIPLATELET THERAPY
     Route: 048
     Dates: start: 20110514, end: 20110705
  2. ASPIRIN [Suspect]
     Route: 048
  3. CYPHER STENT [Concomitant]

REACTIONS (1)
  - Gastrointestinal haemorrhage [None]
